FAERS Safety Report 9397971 (Version 2)
Quarter: 2013Q3

REPORT INFORMATION
  Report Type: Spontaneous
  Country: TW (occurrence: TW)
  Receive Date: 20130712
  Receipt Date: 20130808
  Transmission Date: 20140515
  Serious: Yes (Hospitalization)
  Sender: FDA-Public Use
  Company Number: PHHY2013TW072074

PATIENT
  Age: 23 Year
  Sex: Female

DRUGS (3)
  1. HEPARIN [Suspect]
     Indication: PULMONARY EMBOLISM
     Dosage: 18 IU/KG, PER HOUR
  2. HEPARIN [Suspect]
     Dosage: 16 IU/KG, PER HOUR
  3. TISSUE PLASMINOGEN ACTIVATOR, RECOMBINATIVE [Suspect]
     Indication: PULMONARY EMBOLISM
     Dosage: 100 MG, FOR 2 HOURS

REACTIONS (8)
  - Pneumothorax [Recovered/Resolved]
  - Pleural effusion [Recovered/Resolved]
  - Haemoglobin decreased [Recovered/Resolved]
  - Haemothorax [Recovered/Resolved]
  - Tachycardia [Recovered/Resolved]
  - Cold sweat [Recovered/Resolved]
  - Dyspnoea [Recovered/Resolved]
  - Hypoxia [Recovered/Resolved]
